FAERS Safety Report 17661881 (Version 1)
Quarter: 2020Q2

REPORT INFORMATION
  Report Type: Spontaneous
  Country: US (occurrence: US)
  Receive Date: 20200413
  Receipt Date: 20200413
  Transmission Date: 20200713
  Serious: Yes (Death)
  Sender: FDA-Public Use
  Company Number: None

PATIENT
  Age: 90 Year
  Sex: Male
  Weight: 69.75 kg

DRUGS (22)
  1. OSTEO BIFLEX TRIPLE STRENGTH ORAL [Concomitant]
     Dates: end: 20200413
  2. FISH OIL 1000MG [Concomitant]
     Dates: end: 20200413
  3. VITAMIN D 25 MCG, ORAL [Concomitant]
     Dates: end: 20200413
  4. PRAMIPEXOLE 3MG, ORAL [Concomitant]
     Dates: end: 20200413
  5. ASPIRIN 81MG, ORAL [Concomitant]
     Dates: end: 20200413
  6. MAGNESIUM GLUCONATE 500MG, ORAL [Concomitant]
     Dates: end: 20200413
  7. FLUOXETINE 20MG, ORAL [Concomitant]
     Dates: end: 20200413
  8. MULTI VITAMIN 50+ [Concomitant]
     Dates: end: 20200413
  9. FERROUS SULFATE ER 140MG, ORAL [Concomitant]
     Dates: end: 20200413
  10. NO DRUG NAME [Concomitant]
     Dates: end: 20200413
  11. HYDROCHLOROTHIAZIDE 12.5MG, ORAL [Concomitant]
     Dates: end: 20200413
  12. AMIODARONE 200MG, ORAL [Concomitant]
     Dates: end: 20200413
  13. TYLENOL WITH CODEINE 300 - 60MG, ORAL [Concomitant]
     Dates: end: 20200413
  14. ERLEADA [Suspect]
     Active Substance: APALUTAMIDE
     Indication: PROSTATE CANCER
     Route: 048
     Dates: start: 20191024, end: 20200413
  15. METOPROLOL TARTRATE 100MG ,ORAL [Concomitant]
     Dates: end: 20200413
  16. PRADAXA 110MG ,ORAL [Concomitant]
     Dates: end: 20200413
  17. GABAPENTIN 100MG, ORAL [Concomitant]
     Dates: end: 20200413
  18. TYLENOL 325MG, ORAL [Concomitant]
     Dates: end: 20200413
  19. CALCIUM 1000 +D 1000 - 800 MG [Concomitant]
     Dates: end: 20200413
  20. PRAVASTATIN 10MG, ORAL [Concomitant]
     Dates: end: 20200413
  21. OMEPRAZOLE 20MG, ORAL [Concomitant]
     Dates: end: 20200413
  22. METHOCARBAMOL 750MG, ORAL [Concomitant]
     Dates: end: 20200413

REACTIONS (1)
  - Death [None]

NARRATIVE: CASE EVENT DATE: 20200413
